FAERS Safety Report 8812274 (Version 3)
Quarter: 2012Q4

REPORT INFORMATION
  Report Type: 
  Country: US (occurrence: US)
  Receive Date: 20120927
  Receipt Date: 20121113
  Transmission Date: 20130627
  Serious: No
  Sender: FDA-Public Use
  Company Number: US-ASTRAZENECA-2012SE71255

PATIENT
  Age: 74 Year
  Sex: Female

DRUGS (1)
  1. ARIMIDEX [Suspect]
     Route: 048

REACTIONS (5)
  - Hypertension [Unknown]
  - Malaise [Unknown]
  - Incontinence [Unknown]
  - Malaise [Unknown]
  - Arthritis [Unknown]
